FAERS Safety Report 20382036 (Version 1)
Quarter: 2022Q1

REPORT INFORMATION
  Report Type: Spontaneous
  Country: FR (occurrence: FR)
  Receive Date: 20220127
  Receipt Date: 20220127
  Transmission Date: 20220424
  Serious: Yes (Congenital Anomaly, Other)
  Sender: FDA-Public Use
  Company Number: FR-ABBVIE-22K-056-4248930-00

PATIENT
  Sex: Male
  Weight: 3.11 kg

DRUGS (4)
  1. VALPROATE SODIUM [Suspect]
     Active Substance: VALPROATE SODIUM
     Indication: Maternal exposure timing unspecified
     Route: 064
  2. FOLIC ACID [Concomitant]
     Active Substance: FOLIC ACID
     Indication: Maternal exposure timing unspecified
     Route: 064
  3. MENADIONE [Concomitant]
     Active Substance: MENADIONE
     Indication: Maternal exposure timing unspecified
     Route: 064
  4. MAGNE B6 [Concomitant]
     Active Substance: MAGNESIUM\PYRIDOXINE
     Indication: Maternal exposure timing unspecified
     Route: 064

REACTIONS (22)
  - Visual acuity reduced [Unknown]
  - Toe walking [Unknown]
  - Tooth discolouration [Unknown]
  - Psychomotor skills impaired [Not Recovered/Not Resolved]
  - Learning disability [Not Recovered/Not Resolved]
  - Cleft uvula [Not Recovered/Not Resolved]
  - Behaviour disorder [Not Recovered/Not Resolved]
  - Foot deformity [Not Recovered/Not Resolved]
  - Akathisia [Not Recovered/Not Resolved]
  - Fine motor skill dysfunction [Not Recovered/Not Resolved]
  - Limb deformity [Unknown]
  - Reading disorder [Unknown]
  - Cognitive disorder [Unknown]
  - Personality disorder of childhood [Unknown]
  - Neurodevelopmental disorder [Unknown]
  - Attention deficit hyperactivity disorder [Unknown]
  - Dysgraphia [Unknown]
  - Ankyloglossia congenital [Unknown]
  - Disturbance in attention [Unknown]
  - Developmental delay [Unknown]
  - Aggression [Not Recovered/Not Resolved]
  - Foetal exposure during pregnancy [Unknown]

NARRATIVE: CASE EVENT DATE: 20010830
